FAERS Safety Report 7424479-6 (Version None)
Quarter: 2011Q2

REPORT INFORMATION
  Report Type: 
  Country: None (occurrence: None)
  Receive Date: 20110419
  Receipt Date: 20110413
  Transmission Date: 20111010
  Serious: Yes (Other)
  Sender: FDA-Public Use
  Company Number: US-SANOFI-AVENTIS-2011SA023131

PATIENT
  Age: 63 Year
  Sex: Female

DRUGS (7)
  1. NEBIVOLOL HCL [Concomitant]
     Indication: BLOOD PRESSURE
  2. NORVASC [Concomitant]
  3. NORVASC [Concomitant]
     Indication: BLOOD PRESSURE
  4. GLIMEPIRIDE [Suspect]
     Indication: TYPE 2 DIABETES MELLITUS
     Route: 065
  5. DIOVANE [Concomitant]
     Indication: BLOOD PRESSURE
     Dosage: 320/25 MG
  6. NEBIVOLOL HCL [Concomitant]
  7. DIOVANE [Concomitant]
     Dosage: 320/25 MG

REACTIONS (2)
  - DRUG INEFFECTIVE [None]
  - HYPERTENSION [None]
